FAERS Safety Report 5270806-8 (Version None)
Quarter: 2007Q1

REPORT INFORMATION
  Report Type: 
  Country: None (occurrence: None)
  Receive Date: 20070319
  Receipt Date: 20070319
  Transmission Date: 20070707
  Serious: No
  Sender: FDA-Public Use
  Company Number: None

PATIENT
  Age: 55 Year
  Sex: Male
  Weight: 95.2554 kg

DRUGS (1)
  1. ZICAM COLD REMEDY NO DRIP NASAL LIQUID GEL ZICAM LLC / MATRIXX [Suspect]
     Indication: NASOPHARYNGITIS
     Dosage: ONE PUMP PER NOSTRIL  EVERY 4 HOURS NASAL
     Route: 045
     Dates: start: 20061215, end: 20061217

REACTIONS (2)
  - AGEUSIA [None]
  - ANOSMIA [None]
